FAERS Safety Report 8573313-X (Version None)
Quarter: 2012Q3

REPORT INFORMATION
  Report Type: 
  Country: None (occurrence: None)
  Receive Date: 20120806
  Receipt Date: 20120727
  Transmission Date: 20120928
  Serious: Yes (Hospitalization, Other)
  Sender: FDA-Public Use
  Company Number: US-ASTRAZENECA-2011SE59533

PATIENT
  Age: 51 Year
  Sex: Female

DRUGS (2)
  1. NEXIUM [Suspect]
     Dosage: TWO TIMES A DAY
     Route: 048
  2. NEXIUM [Suspect]
     Dosage: ONCE A DAY
     Route: 048

REACTIONS (7)
  - BLOOD PRESSURE DECREASED [None]
  - IRRITABLE BOWEL SYNDROME [None]
  - SYNCOPE [None]
  - VIRAL INFECTION [None]
  - CONSTIPATION [None]
  - JAW FRACTURE [None]
  - REGURGITATION [None]
